FAERS Safety Report 5139997-3 (Version None)
Quarter: 2006Q4

REPORT INFORMATION
  Report Type: 
  Country: None (occurrence: None)
  Receive Date: 20061031
  Receipt Date: 20061018
  Transmission Date: 20070319
  Serious: Yes (Other)
  Sender: FDA-Public Use
  Company Number: PHRM2006FR02897

PATIENT
  Age: 32 Year
  Sex: Male

DRUGS (1)
  1. TEGRETOL [Suspect]
     Route: 048
     Dates: start: 19960101

REACTIONS (1)
  - AZOOSPERMIA [None]
